FAERS Safety Report 7357009-8 (Version None)
Quarter: 2011Q1

REPORT INFORMATION
  Report Type: 
  Country: None (occurrence: None)
  Receive Date: 20110317
  Receipt Date: 20110315
  Transmission Date: 20110831
  Serious: Yes (Hospitalization, Other)
  Sender: FDA-Public Use
  Company Number: ES-BAXTER-2011BH003946

PATIENT
  Age: 3 Year
  Sex: Male

DRUGS (2)
  1. ADVATE [Suspect]
     Indication: PRODUCT USED FOR UNKNOWN INDICATION
     Route: 065
  2. RABIES VACCINE [Concomitant]
     Indication: ANIMAL BITE

REACTIONS (2)
  - MUSCLE HAEMORRHAGE [None]
  - FACTOR VIII INHIBITION [None]
